FAERS Safety Report 5010007-1 (Version None)
Quarter: 2006Q2

REPORT INFORMATION
  Report Type: 
  Country: None (occurrence: None)
  Receive Date: 20060523
  Receipt Date: 20060508
  Transmission Date: 20061013
  Serious: Yes (Other)
  Sender: FDA-Public Use
  Company Number: 2006BL002351

PATIENT
  Age: 82 Year
  Sex: Female

DRUGS (4)
  1. FLOXAL AUGENTROPFEN (OFLOXACIN) [Suspect]
     Indication: HYPOPYON
     Dosage: 3 TIMES A DAY; TOPICAL
     Route: 061
  2. FLOXAL AUGENTROPFEN (OFLOXACIN) [Suspect]
     Indication: ULCERATIVE KERATITIS
     Dosage: 3 TIMES A DAY; TOPICAL
     Route: 061
  3. LATANOPROST [Concomitant]
  4. CYCLOPENTOLATE HCL [Concomitant]

REACTIONS (3)
  - ACID BASE BALANCE ABNORMAL [None]
  - CORNEAL DEPOSITS [None]
  - DRUG INTERACTION [None]
